FAERS Safety Report 5841254-4 (Version None)
Quarter: 2008Q3

REPORT INFORMATION
  Report Type: 
  Country: None (occurrence: None)
  Receive Date: 20080812
  Receipt Date: 20080808
  Transmission Date: 20090109
  Serious: Yes (Life-Threatening, Hospitalization)
  Sender: FDA-Public Use
  Company Number: GB-BRISTOL-MYERS SQUIBB COMPANY-14295299

PATIENT
  Age: 40 Year
  Sex: Female
  Weight: 84 kg

DRUGS (5)
  1. PACLITAXEL [Suspect]
     Indication: BREAST CANCER
     Dates: start: 20070503, end: 20070503
  2. CYCLOPHOSPHAMIDE [Suspect]
     Indication: BREAST CANCER
     Dates: start: 20070517, end: 20070517
  3. EPIRUBICIN HCL [Suspect]
     Indication: BREAST CANCER
     Dates: start: 20070517, end: 20070517
  4. GEMCITABINE [Suspect]
     Indication: BREAST CANCER
     Dates: start: 20070503, end: 20070503
  5. OMEPRAZOLE [Concomitant]
     Indication: DYSPEPSIA
     Route: 048
     Dates: start: 20070517

REACTIONS (4)
  - COUGH [None]
  - DYSPNOEA [None]
  - PULMONARY EMBOLISM [None]
  - PYREXIA [None]
